FAERS Safety Report 10476596 (Version 2)
Quarter: 2014Q4

REPORT INFORMATION
  Report Type: Spontaneous
  Country: JP (occurrence: JP)
  Receive Date: 20140925
  Receipt Date: 20141016
  Transmission Date: 20150528
  Serious: Yes (Hospitalization, Other)
  Sender: FDA-Public Use
  Company Number: JP-SA-2014SA129146

PATIENT
  Age: 40 Year
  Sex: Female

DRUGS (1)
  1. FUROSEMIDE. [Suspect]
     Active Substance: FUROSEMIDE
     Indication: WEIGHT DECREASED
     Route: 048

REACTIONS (9)
  - Blood urea increased [Unknown]
  - Chronic kidney disease [Unknown]
  - Hypokalaemia [Unknown]
  - Decreased appetite [Unknown]
  - Blood creatinine increased [Unknown]
  - Altered state of consciousness [Unknown]
  - Pseudo-Bartter syndrome [Unknown]
  - Intentional product misuse [Unknown]
  - Dehydration [Unknown]
